FAERS Safety Report 4807807-7 (Version None)
Quarter: 2005Q4

REPORT INFORMATION
  Report Type: 
  Country: None (occurrence: None)
  Receive Date: 20051024
  Receipt Date: 20051014
  Transmission Date: 20060501
  Serious: Yes (Disabling)
  Sender: FDA-Public Use
  Company Number: NO-ABBOTT-05P-122-0314205-00

PATIENT
  Sex: Female

DRUGS (3)
  1. REDUCTIL [Suspect]
     Indication: OBESITY
     Route: 048
     Dates: start: 20050317, end: 20050801
  2. TOLTERODINE [Concomitant]
     Indication: URGE INCONTINENCE
     Route: 048
     Dates: start: 20040928, end: 20050801
  3. TOLTERODINE [Concomitant]
     Indication: UTERINE PROLAPSE

REACTIONS (3)
  - OEDEMA [None]
  - RENAL IMPAIRMENT [None]
  - TUBULOINTERSTITIAL NEPHRITIS [None]
